FAERS Safety Report 8250830-3 (Version None)
Quarter: 2012Q2

REPORT INFORMATION
  Report Type: 
  Country: None (occurrence: None)
  Receive Date: 20120402
  Receipt Date: 20120327
  Transmission Date: 20120825
  Serious: Yes (Hospitalization)
  Sender: FDA-Public Use
  Company Number: US-GILEAD-2012-0052777

PATIENT
  Age: 62 Year
  Sex: Female

DRUGS (1)
  1. LETAIRIS [Suspect]
     Indication: PRODUCT USED FOR UNKNOWN INDICATION
     Dosage: 10 MG, UNK
     Route: 048
     Dates: start: 20071108

REACTIONS (6)
  - DECREASED APPETITE [None]
  - CONFUSIONAL STATE [None]
  - DIZZINESS [None]
  - ASTHENIA [None]
  - ANAEMIA [None]
  - OEDEMA [None]
